FAERS Safety Report 4536580-5 (Version None)
Quarter: 2004Q4

REPORT INFORMATION
  Report Type: 
  Country: None (occurrence: None)
  Receive Date: 20041223
  Receipt Date: 20041213
  Transmission Date: 20050328
  Serious: Yes (Other)
  Sender: FDA-Public Use
  Company Number: ES-JNJFOC-20041203239

PATIENT
  Age: 25 Year
  Sex: Female
  Weight: 45 kg

DRUGS (1)
  1. ORTHO EVRA [Suspect]
     Route: 062

REACTIONS (8)
  - ABDOMINAL PAIN [None]
  - DIZZINESS [None]
  - ECZEMA [None]
  - FACIAL PALSY [None]
  - MIGRAINE [None]
  - PARAESTHESIA [None]
  - PRURITUS [None]
  - WEIGHT DECREASED [None]
